FAERS Safety Report 8615608-7 (Version None)
Quarter: 2012Q3

REPORT INFORMATION
  Report Type: 
  Country: None (occurrence: None)
  Receive Date: 20120823
  Receipt Date: 20120813
  Transmission Date: 20120928
  Serious: Yes (Other)
  Sender: FDA-Public Use
  Company Number: US-ELI_LILLY_AND_COMPANY-US201208004782

PATIENT
  Sex: Female

DRUGS (1)
  1. FORTEO [Suspect]
     Indication: OSTEOPOROSIS
     Dosage: 20 UG, QD
     Dates: end: 20110601

REACTIONS (9)
  - HYSTERECTOMY [None]
  - ARTHRITIS [None]
  - PARKINSON'S DISEASE [None]
  - ASTHENIA [None]
  - FEELING ABNORMAL [None]
  - DIVERTICULITIS [None]
  - ARTHRALGIA [None]
  - URINARY TRACT INFECTION [None]
  - CYSTOPEXY [None]
